FAERS Safety Report 4853788-X (Version None)
Quarter: 2005Q4

REPORT INFORMATION
  Report Type: 
  Country: None (occurrence: None)
  Receive Date: 20051212
  Receipt Date: 20051128
  Transmission Date: 20060501
  Serious: Yes (Other)
  Sender: FDA-Public Use
  Company Number: 2005161500

PATIENT
  Age: 59 Year
  Sex: Male
  Weight: 68.9467 kg

DRUGS (1)
  1. VIAGRA [Suspect]
     Indication: ERECTILE DYSFUNCTION
     Dosage: 50 MG (50 MG, AS NECESSARY),
     Dates: end: 20050101

REACTIONS (1)
  - ROTATOR CUFF SYNDROME [None]
